FAERS Safety Report 15451923 (Version 1)
Quarter: 2018Q4

REPORT INFORMATION
  Report Type: Spontaneous
  Country: US (occurrence: US)
  Receive Date: 20181001
  Receipt Date: 20181001
  Transmission Date: 20190204
  Serious: No
  Sender: FDA-Public Use
  Company Number: US-BAYER-2018-177077

PATIENT
  Age: 53 Year
  Sex: Female

DRUGS (1)
  1. CLIMARA PRO [Suspect]
     Active Substance: ESTRADIOL\LEVONORGESTREL
     Indication: HORMONE REPLACEMENT THERAPY
     Dosage: UNK MG, UNK
     Route: 062
     Dates: start: 20180903

REACTIONS (7)
  - Pigmentation disorder [None]
  - Fungal infection [None]
  - Hot flush [Not Recovered/Not Resolved]
  - Breast swelling [None]
  - Breast tenderness [Not Recovered/Not Resolved]
  - Breast enlargement [None]
  - Product adhesion issue [None]

NARRATIVE: CASE EVENT DATE: 20180911
